FAERS Safety Report 18395597 (Version 1)
Quarter: 2020Q4

REPORT INFORMATION
  Report Type: Other
  Country: IT (occurrence: IT)
  Receive Date: 20201017
  Receipt Date: 20201017
  Transmission Date: 20210114
  Serious: Yes (Other)
  Sender: FDA-Public Use
  Company Number: IT-ROCHE-2697327

PATIENT
  Age: 2 Month
  Sex: Female

DRUGS (6)
  1. ANTITHYMOCYTE IMMUNOGLOBULIN (RABBIT) [Concomitant]
     Active Substance: LAPINE T-LYMPHOCYTE IMMUNE GLOBULIN
     Indication: OSTEOPETROSIS
     Route: 065
  2. CYCLOSPORINE. [Suspect]
     Active Substance: CYCLOSPORINE
     Indication: PROPHYLAXIS AGAINST GRAFT VERSUS HOST DISEASE
     Route: 065
  3. MYCOPHENOLATE MOFETIL. [Suspect]
     Active Substance: MYCOPHENOLATE MOFETIL
     Indication: PROPHYLAXIS AGAINST GRAFT VERSUS HOST DISEASE
     Route: 065
  4. TREOSULFAN [Concomitant]
     Active Substance: TREOSULFAN
     Indication: OSTEOPETROSIS
     Route: 065
  5. FLUDARABINE [Concomitant]
     Active Substance: FLUDARABINE PHOSPHATE
     Indication: OSTEOPETROSIS
  6. THIOTEPA. [Concomitant]
     Active Substance: THIOTEPA
     Indication: OSTEOPETROSIS
     Route: 065

REACTIONS (4)
  - Cardiomyopathy [Recovered/Resolved]
  - Skin lesion [Recovered/Resolved]
  - Pneumonitis [Recovered/Resolved]
  - Cytomegalovirus infection reactivation [Recovered/Resolved]
